FAERS Safety Report 20502521 (Version 1)
Quarter: 2022Q1

REPORT INFORMATION
  Report Type: Spontaneous
  Country: US (occurrence: None)
  Receive Date: 20220219
  Receipt Date: 20220219
  Transmission Date: 20220423
  Serious: Yes (Other)
  Sender: FDA-Public Use
  Company Number: None

PATIENT
  Age: 66 Year
  Sex: Female
  Weight: 92.34 kg

DRUGS (15)
  1. VERZENIO [Suspect]
     Active Substance: ABEMACICLIB
     Indication: Breast cancer female
     Dosage: FREQUENCY : TWICE A DAY;?
     Route: 048
     Dates: start: 20210901, end: 20220219
  2. ALOE VERA 25MG [Concomitant]
  3. ATENOLOL [Concomitant]
     Active Substance: ATENOLOL
  4. FEMARA [Concomitant]
     Active Substance: LETROZOLE
  5. FUROSEMIDE [Concomitant]
     Active Substance: FUROSEMIDE
  6. LOSARTAN [Concomitant]
     Active Substance: LOSARTAN
  7. MICATIN 2% [Concomitant]
  8. VENTOLIN HFA 108MCG [Concomitant]
  9. VITAMIN D3 25MCG [Concomitant]
  10. IBUPROFEN [Concomitant]
     Active Substance: IBUPROFEN
  11. MILK THISTLE 140MG [Concomitant]
  12. GAS-X 80MG [Concomitant]
  13. KLOR-CON 10MEQ [Concomitant]
  14. REGLAN [Concomitant]
     Active Substance: METOCLOPRAMIDE HYDROCHLORIDE
  15. CBD4 FREEZE PUMP 4-1% [Concomitant]

REACTIONS (1)
  - Disease progression [None]

NARRATIVE: CASE EVENT DATE: 20220216
